FAERS Safety Report 10883842 (Version 3)
Quarter: 2015Q2

REPORT INFORMATION
  Report Type: Report from Study
  Country: JP (occurrence: JP)
  Receive Date: 20150304
  Receipt Date: 20150617
  Transmission Date: 20150821
  Serious: Yes (Other)
  Sender: FDA-Public Use
  Company Number: JP-AMGEN-JPNCT2015019628

PATIENT
  Age: 68 Year
  Sex: Female
  Weight: 64 kg

DRUGS (15)
  1. NOVAMIN                            /00013301/ [Concomitant]
     Active Substance: PROCHLORPERAZINE MALEATE
     Dosage: 15 MG, QD
     Route: 048
     Dates: start: 20140821, end: 20140918
  2. MEIACT [Concomitant]
     Active Substance: CEFDITOREN PIVOXIL
     Dosage: 300 MG, QD
     Route: 048
     Dates: start: 20141120, end: 20141127
  3. SENNOSIDE                          /00571901/ [Concomitant]
     Active Substance: SENNOSIDES A AND B
     Dosage: 24 MG, QD
     Route: 048
  4. DENOTAS [Concomitant]
     Active Substance: CALCIUM CARBONATE\CHOLECALCIFEROL\MAGNESIUM CARBONATE
     Dosage: 2 DF, QD
     Route: 048
     Dates: start: 20140127, end: 20140918
  5. FASLODEX [Concomitant]
     Active Substance: FULVESTRANT
     Dosage: UNK
     Route: 065
     Dates: start: 20141023
  6. CELECOX [Concomitant]
     Active Substance: CELECOXIB
     Dosage: 200 MG, QD
     Route: 048
     Dates: start: 20140211
  7. ZANTAC [Concomitant]
     Active Substance: RANITIDINE HYDROCHLORIDE
     Dosage: 150 MG, QD
     Route: 048
     Dates: start: 20140225
  8. DENOSUMAB [Suspect]
     Active Substance: DENOSUMAB
     Indication: METASTASES TO BONE
     Dosage: 120 MG, UNK
     Route: 058
     Dates: start: 20140128
  9. FEMARA [Concomitant]
     Active Substance: LETROZOLE
     Dosage: UNK
     Route: 065
     Dates: start: 20140225, end: 20141022
  10. CRAVIT [Concomitant]
     Active Substance: LEVOFLOXACIN
     Dosage: 500 MG, QD
     Route: 048
     Dates: start: 20150115, end: 20150121
  11. AMLODIPINE [Concomitant]
     Active Substance: AMLODIPINE BESYLATE
     Dosage: 5 MG, QD
     Route: 048
  12. TRAMCET [Concomitant]
     Active Substance: ACETAMINOPHEN\TRAMADOL
     Dosage: 3 DF, QD
     Route: 048
     Dates: start: 20140121
  13. OXYCONTIN [Concomitant]
     Active Substance: OXYCODONE HYDROCHLORIDE
     Dosage: 10 MG, QD
     Route: 048
     Dates: start: 20140821
  14. REBAMIPIDE [Concomitant]
     Active Substance: REBAMIPIDE
     Dosage: 200 MG, QD
     Route: 048
  15. OXINORM                            /00045603/ [Concomitant]
     Dosage: 2.5 MG, QD
     Route: 048
     Dates: start: 20140127

REACTIONS (1)
  - Osteonecrosis of jaw [Recovering/Resolving]

NARRATIVE: CASE EVENT DATE: 20140828
